FAERS Safety Report 9749891 (Version 2)
Quarter: 2014Q1

REPORT INFORMATION
  Report Type: Spontaneous
  Country: US (occurrence: US)
  Receive Date: 20131212
  Receipt Date: 20140110
  Transmission Date: 20141002
  Serious: No
  Sender: FDA-Public Use
  Company Number: US-PFIZER INC-2013350940

PATIENT
  Age: 36 Year
  Sex: Male
  Weight: 122 kg

DRUGS (1)
  1. ADVIL [Suspect]
     Indication: TOOTHACHE
     Dosage: 400 MG, (2 TABLETS OF 200MG EACH), DAILY
     Dates: start: 20131204

REACTIONS (3)
  - Swelling face [Unknown]
  - Rash erythematous [Unknown]
  - Pain [Unknown]
